FAERS Safety Report 25299082 (Version 1)
Quarter: 2025Q2

REPORT INFORMATION
  Report Type: Spontaneous
  Country: US (occurrence: US)
  Receive Date: 20250512
  Receipt Date: 20250512
  Transmission Date: 20250716
  Serious: Yes (Hospitalization)
  Sender: STRIDES
  Company Number: US-STRIDES ARCOLAB LIMITED-2025SP005755

PATIENT
  Age: 50 Year
  Sex: Female

DRUGS (8)
  1. MYCOPHENOLATE MOFETIL [Suspect]
     Active Substance: MYCOPHENOLATE MOFETIL
     Indication: Immune-mediated pancreatitis
     Route: 065
  2. PREDNISONE [Suspect]
     Active Substance: PREDNISONE
     Indication: Immune-mediated pancreatitis
     Route: 065
  3. PREDNISONE [Suspect]
     Active Substance: PREDNISONE
     Route: 065
  4. PREDNISONE [Suspect]
     Active Substance: PREDNISONE
     Route: 065
  5. PREDNISONE [Suspect]
     Active Substance: PREDNISONE
     Route: 065
  6. AZATHIOPRINE [Suspect]
     Active Substance: AZATHIOPRINE
     Indication: Immune-mediated pancreatitis
     Route: 065
  7. NIVOLUMAB [Concomitant]
     Active Substance: NIVOLUMAB
     Indication: Sclerosing epithelioid fibrosarcoma
     Route: 065
  8. IPILIMUMAB [Concomitant]
     Active Substance: IPILIMUMAB
     Indication: Sclerosing epithelioid fibrosarcoma
     Route: 065

REACTIONS (3)
  - Oedema peripheral [Unknown]
  - Drug effective for unapproved indication [Unknown]
  - Off label use [Unknown]
